FAERS Safety Report 17554068 (Version 1)
Quarter: 2020Q1

REPORT INFORMATION
  Report Type: Spontaneous
  Country: JP (occurrence: JP)
  Receive Date: 20200317
  Receipt Date: 20200317
  Transmission Date: 20200409
  Serious: Yes (Other)
  Sender: FDA-Public Use
  Company Number: JP-SUN PHARMACEUTICAL INDUSTRIES LTD-2020RR-240702

PATIENT
  Age: 69 Year
  Sex: Female

DRUGS (6)
  1. PACLITAXEL. [Suspect]
     Active Substance: PACLITAXEL
     Indication: CONDITION AGGRAVATED
     Dosage: 80.0 MG/M^2 ON DAYS 1, 8, AND 15 EVERY 4 WEEKS (3 CYCLES)
     Route: 065
  2. TEGAFUR/GIMERACIL/OTERACIL [Suspect]
     Active Substance: GIMERACIL\OTERACIL\TEGAFUR
     Indication: METASTATIC GASTRIC CANCER
     Dosage: 80.0-120.0 MG/DAY
     Route: 065
  3. OXALIPLATIN. [Suspect]
     Active Substance: OXALIPLATIN
     Indication: METASTATIC GASTRIC CANCER
     Dosage: 100.0 MG/M2 ON DAY 1 EVERY 3 WEEKS
     Route: 065
  4. PACLITAXEL. [Suspect]
     Active Substance: PACLITAXEL
     Dosage: UNK
  5. IRINOTECAN [Suspect]
     Active Substance: IRINOTECAN
     Indication: CONDITION AGGRAVATED
     Dosage: 150.0 MG/M2 ON DAYS 1 AND 15 EVERY 4 WEEKS; 3 CYCLES
     Route: 065
  6. DOCETAXEL. [Suspect]
     Active Substance: DOCETAXEL
     Indication: CONDITION AGGRAVATED
     Dosage: 60.0 MG/M2 ON DAY 1 EVERY 3 WEEKS, 3 CYCLES
     Route: 065

REACTIONS (2)
  - Disease progression [Unknown]
  - Drug ineffective [Unknown]
